FAERS Safety Report 23755111 (Version 2)
Quarter: 2024Q2

REPORT INFORMATION
  Report Type: Report from Study
  Country: US (occurrence: US)
  Receive Date: 20240418
  Receipt Date: 20240514
  Transmission Date: 20240716
  Serious: Yes (Hospitalization, Other)
  Sender: FDA-Public Use
  Company Number: US-ALXN-202404GLO000744US

PATIENT
  Sex: Male

DRUGS (14)
  1. SOLIRIS [Suspect]
     Active Substance: ECULIZUMAB
     Indication: Myasthenia gravis
     Dosage: 900 MILLIGRAM
     Route: 065
     Dates: start: 20200921, end: 20201012
  2. SOLIRIS [Suspect]
     Active Substance: ECULIZUMAB
     Dosage: 1200 MILLIGRAM
     Route: 065
     Dates: start: 20201019, end: 20220628
  3. SOLIRIS [Suspect]
     Active Substance: ECULIZUMAB
     Dosage: UNK
     Route: 065
     Dates: start: 20220628
  4. ULTOMIRIS [Suspect]
     Active Substance: RAVULIZUMAB-CWVZ
     Indication: Myasthenia gravis
     Dosage: 2700 MILLIGRAM, SINGLE
     Route: 065
     Dates: start: 20220629, end: 20220629
  5. ULTOMIRIS [Suspect]
     Active Substance: RAVULIZUMAB-CWVZ
     Dosage: 3300 MILLIGRAM
     Route: 065
     Dates: start: 20220713
  6. CYANOCOBALAMIN [Concomitant]
     Active Substance: CYANOCOBALAMIN
     Indication: Anaemia
     Dosage: 1000 MICROGRAM, QW
     Route: 030
     Dates: start: 20221004
  7. HYDROCODONE BITARTRATE AND ACETAMINOPHEN [Concomitant]
     Active Substance: ACETAMINOPHEN\HYDROCODONE BITARTRATE
     Indication: Arthritis reactive
     Dosage: 10-325 MILLIGRAM, EVERY 6 HOURS AS NEEDED
     Route: 048
     Dates: start: 20230524
  8. HYDROCODONE BITARTRATE AND ACETAMINOPHEN [Concomitant]
     Active Substance: ACETAMINOPHEN\HYDROCODONE BITARTRATE
     Indication: Pain
  9. CEFPODOXIME [Concomitant]
     Active Substance: CEFPODOXIME
     Indication: Infection
     Dosage: 200 MILLIGRAM, BID
     Route: 048
     Dates: start: 20230527
  10. DAPAGLIFLOZIN [Concomitant]
     Active Substance: DAPAGLIFLOZIN
     Indication: Chronic kidney disease
     Dosage: 5 MILLIGRAM, QD
     Route: 048
     Dates: start: 20230527
  11. FAMOTIDINE [Concomitant]
     Active Substance: FAMOTIDINE
     Indication: Dyspepsia
     Dosage: 40 MILLIGRAM, BID
     Route: 048
     Dates: start: 20230527
  12. METRONIDAZOLE [Concomitant]
     Active Substance: METRONIDAZOLE
     Indication: Diarrhoea
     Dosage: 500 MILLIGRAM, TID
     Route: 048
     Dates: start: 20230527
  13. PREDNISONE [Concomitant]
     Active Substance: PREDNISONE
     Indication: Arthritis reactive
     Dosage: 20 MILLIGRAM, QD FOR 14 DAYS
     Route: 048
     Dates: start: 20230527
  14. PREDNISONE [Concomitant]
     Active Substance: PREDNISONE
     Dosage: 10 MILLIGRAM, 2 WKS
     Route: 048

REACTIONS (1)
  - Arthritis bacterial [Recovering/Resolving]

NARRATIVE: CASE EVENT DATE: 20240404
